FAERS Safety Report 8384518-5 (Version None)
Quarter: 2012Q2

REPORT INFORMATION
  Report Type: 
  Country: None (occurrence: None)
  Receive Date: 20120524
  Receipt Date: 20120522
  Transmission Date: 20120825
  Serious: Yes (Death, Life-Threatening, Hospitalization, Other)
  Sender: FDA-Public Use
  Company Number: JP-B.I. PHARMACEUTICALS,INC./RIDGEFIELD-2012-BP-06399NB

PATIENT
  Sex: Male
  Weight: 54 kg

DRUGS (9)
  1. PRADAXA [Suspect]
     Dosage: 300 MG
     Route: 048
     Dates: start: 20110915, end: 20111226
  2. SHIMBU-TO [Concomitant]
     Dosage: 7.5 G
     Route: 048
     Dates: start: 20101021
  3. PRADAXA [Suspect]
     Indication: ATRIAL FIBRILLATION
     Dosage: 300 MG
     Route: 048
     Dates: start: 20110516
  4. PRADAXA [Suspect]
     Dosage: 220 MG
     Route: 048
  5. BLOSTAR M [Concomitant]
     Dosage: 20 MG
     Route: 048
     Dates: start: 20101221
  6. LASIX [Concomitant]
     Indication: CARDIAC FAILURE CONGESTIVE
     Dosage: 10 MG
     Route: 048
     Dates: start: 20110726
  7. ZYPREXA [Concomitant]
     Indication: PSYCHOTIC DISORDER
     Dosage: 10 MG
     Route: 048
     Dates: start: 20100909
  8. TAMSULOSIN HCL [Concomitant]
     Indication: BENIGN PROSTATIC HYPERPLASIA
     Dosage: 10 MG
     Route: 048
     Dates: start: 20101008
  9. ALDACTONE [Concomitant]
     Indication: CARDIAC FAILURE CONGESTIVE
     Dosage: 25 MG
     Route: 048
     Dates: start: 20110726

REACTIONS (4)
  - DISSEMINATED INTRAVASCULAR COAGULATION [None]
  - AORTIC DISSECTION [None]
  - PNEUMONIA ASPIRATION [None]
  - PNEUMONIA [None]
